FAERS Safety Report 9412551 (Version 2)
Quarter: 2013Q3

REPORT INFORMATION
  Report Type: Report from Study
  Country: US (occurrence: US)
  Receive Date: 20130722
  Receipt Date: 20130731
  Transmission Date: 20140515
  Serious: No
  Sender: FDA-Public Use
  Company Number: US-BAYER-2013-087561

PATIENT
  Sex: Female

DRUGS (1)
  1. MIRENA [Suspect]
     Dosage: 20 MCG/24HR, CONT
     Route: 015
     Dates: end: 201306

REACTIONS (6)
  - Amenorrhoea [Not Recovered/Not Resolved]
  - Cervical discharge [None]
  - Breast pain [None]
  - Nausea [None]
  - Pollakiuria [None]
  - Abdominal distension [None]
